FAERS Safety Report 20203842 (Version 1)
Quarter: 2021Q4

REPORT INFORMATION
  Report Type: Report from Study
  Country: US (occurrence: US)
  Receive Date: 20211219
  Receipt Date: 20211219
  Transmission Date: 20220303
  Serious: Yes (Hospitalization)
  Sender: FDA-Public Use
  Company Number: US-ABBVIE-21K-163-4200983-00

PATIENT
  Age: 54 Year
  Sex: Female
  Weight: 80.358 kg

DRUGS (1)
  1. HUMIRA [Suspect]
     Active Substance: ADALIMUMAB
     Indication: Crohn^s disease
     Route: 058
     Dates: start: 202110

REACTIONS (2)
  - Gastrointestinal neoplasm [Recovering/Resolving]
  - Injury associated with device [Recovered/Resolved]

NARRATIVE: CASE EVENT DATE: 20211001
